FAERS Safety Report 20093068 (Version 1)
Quarter: 2021Q4

REPORT INFORMATION
  Report Type: Spontaneous
  Country: US (occurrence: US)
  Receive Date: 20211120
  Receipt Date: 20211120
  Transmission Date: 20220303
  Serious: Yes (Other)
  Sender: FDA-Public Use
  Company Number: US-JNJFOC-20211123570

PATIENT
  Sex: Male

DRUGS (1)
  1. BALVERSA [Suspect]
     Active Substance: ERDAFITINIB
     Indication: Bladder cancer
     Route: 048
     Dates: start: 202109

REACTIONS (3)
  - Thrombosis [Unknown]
  - Dyspnoea [Unknown]
  - Product label issue [Unknown]

NARRATIVE: CASE EVENT DATE: 20211018
